FAERS Safety Report 11083779 (Version 3)
Quarter: 2015Q2

REPORT INFORMATION
  Report Type: Spontaneous
  Country: US (occurrence: US)
  Receive Date: 20150501
  Receipt Date: 20150605
  Transmission Date: 20150821
  Serious: Yes (Hospitalization, Other)
  Sender: FDA-Public Use
  Company Number: US-GLAXOSMITHKLINE-US2015GSK057474

PATIENT
  Age: 58 Year
  Sex: Female
  Weight: 83.45 kg

DRUGS (34)
  1. WELLBUTRIN XL [Suspect]
     Active Substance: BUPROPION HYDROCHLORIDE
     Indication: EX-TOBACCO USER
     Dosage: 75 MG, QD
     Route: 048
  2. PROMETHAZINE [Suspect]
     Active Substance: PROMETHAZINE\PROMETHAZINE HYDROCHLORIDE
     Indication: PRODUCT USED FOR UNKNOWN INDICATION
  3. BENADRYL [Suspect]
     Active Substance: DIPHENHYDRAMINE HYDROCHLORIDE
     Indication: PRODUCT USED FOR UNKNOWN INDICATION
  4. IBUPROFEN. [Concomitant]
     Active Substance: IBUPROFEN
  5. DOCUSATE [Concomitant]
     Active Substance: DOCUSATE
  6. VYTORIN [Concomitant]
     Active Substance: EZETIMIBE\SIMVASTATIN
  7. ASPIRIN (BABY) [Suspect]
     Active Substance: ASPIRIN
  8. MORPHINE [Suspect]
     Active Substance: MORPHINE
     Indication: POST HERPETIC NEURALGIA
  9. METFORMIN [Concomitant]
     Active Substance: METFORMIN HYDROCHLORIDE
  10. RESTASIS [Concomitant]
     Active Substance: CYCLOSPORINE
  11. MEPERIDINE [Suspect]
     Active Substance: MEPERIDINE
     Indication: PROCEDURAL PAIN
     Dosage: UNK, U
  12. FLUMAZENIL. [Suspect]
     Active Substance: FLUMAZENIL
     Indication: PRODUCT USED FOR UNKNOWN INDICATION
  13. WELLBUTRIN XL [Suspect]
     Active Substance: BUPROPION HYDROCHLORIDE
     Indication: ANXIOLYTIC THERAPY
  14. ZOFRAN [Suspect]
     Active Substance: ONDANSETRON HYDROCHLORIDE
     Indication: NAUSEA
     Dosage: 8 MG, BID
     Route: 048
     Dates: start: 20150126, end: 20150126
  15. ZOFRAN [Suspect]
     Active Substance: ONDANSETRON HYDROCHLORIDE
     Indication: NAUSEA
     Dosage: 4 MG, UNK
     Route: 042
     Dates: start: 20150126, end: 20150126
  16. MORPHINE [Suspect]
     Active Substance: MORPHINE
     Indication: PAIN
     Dosage: 30 MG, BID
     Dates: start: 2010
  17. GRALISE [Suspect]
     Active Substance: GABAPENTIN
     Dosage: UNK
     Dates: start: 201404
  18. DILAUDID [Suspect]
     Active Substance: HYDROMORPHONE HYDROCHLORIDE
     Indication: PROCEDURAL PAIN
     Dosage: 1-2 EVERY 6 HOURS
     Route: 048
     Dates: start: 20150129, end: 20150210
  19. DEMEROL [Suspect]
     Active Substance: MEPERIDINE HYDROCHLORIDE
     Indication: PRODUCT USED FOR UNKNOWN INDICATION
     Dosage: UNK
     Route: 065
  20. LIDOCAINE. [Concomitant]
     Active Substance: LIDOCAINE
  21. TRAMADOL [Suspect]
     Active Substance: TRAMADOL
     Indication: PRODUCT USED FOR UNKNOWN INDICATION
     Dosage: 2 DF, U
     Route: 065
     Dates: start: 20150127
  22. GRALISE [Suspect]
     Active Substance: GABAPENTIN
     Indication: POST HERPETIC NEURALGIA
     Dosage: 1800 MG, QD
     Route: 048
     Dates: start: 201404
  23. PROZAC [Suspect]
     Active Substance: FLUOXETINE HYDROCHLORIDE
     Indication: ANTIDEPRESSANT THERAPY
     Dosage: 10 MG, QD
     Route: 048
     Dates: start: 2008
  24. NARCAN [Concomitant]
     Active Substance: NALOXONE HYDROCHLORIDE
  25. ALIGN [Concomitant]
     Active Substance: BIFIDOBACTERIUM LONGUM SUBSP. INFANTIS
  26. PROZAC [Suspect]
     Active Substance: FLUOXETINE HYDROCHLORIDE
     Indication: PROPHYLAXIS
  27. EPHEDRINE [Concomitant]
     Active Substance: EPHEDRINE
  28. MACROGOL [Concomitant]
     Active Substance: POLYETHYLENE GLYCOLS
  29. PROPOFOL. [Suspect]
     Active Substance: PROPOFOL
     Indication: PRODUCT USED FOR UNKNOWN INDICATION
  30. MORPHINE [Suspect]
     Active Substance: MORPHINE
     Indication: NERVOUS SYSTEM DISORDER
  31. NUCYNTA [Suspect]
     Active Substance: TAPENTADOL HYDROCHLORIDE
     Indication: PROCEDURAL PAIN
     Dosage: 50 TO 100 MG, Q3 HOURS PRN
     Route: 048
     Dates: start: 20150126, end: 20150130
  32. FENTANYL. [Suspect]
     Active Substance: FENTANYL
     Indication: PAIN
     Dosage: 100 MG, QD
     Route: 042
     Dates: start: 20150126, end: 20150126
  33. VALIUM [Concomitant]
     Active Substance: DIAZEPAM
  34. CYCLOBENZAPRINE [Suspect]
     Active Substance: CYCLOBENZAPRINE
     Indication: PRODUCT USED FOR UNKNOWN INDICATION

REACTIONS (38)
  - Serotonin syndrome [Recovered/Resolved]
  - Weight decreased [Recovered/Resolved]
  - Retching [Unknown]
  - Myoclonus [Unknown]
  - Clonus [Unknown]
  - Drug ineffective [Unknown]
  - Arthritis [Unknown]
  - Hip arthroplasty [Recovered/Resolved]
  - Tonic clonic movements [Unknown]
  - Nervous system disorder [Unknown]
  - Arthropathy [Unknown]
  - Nausea [Recovered/Resolved]
  - Off label use [Unknown]
  - Neuropathy peripheral [Unknown]
  - Nystagmus [Unknown]
  - Knee arthroplasty [Unknown]
  - Fall [Recovered/Resolved]
  - Hypotension [Recovered/Resolved]
  - Vomiting [Recovered/Resolved]
  - Body temperature increased [Unknown]
  - Herpes virus infection [Not Recovered/Not Resolved]
  - Herpes zoster [Not Recovered/Not Resolved]
  - Decreased appetite [Recovered/Resolved]
  - Blindness transient [Recovered/Resolved]
  - Screaming [Recovered/Resolved]
  - Aphasia [Unknown]
  - Post herpetic neuralgia [Unknown]
  - Disturbance in attention [Unknown]
  - Pain [Recovered/Resolved]
  - Mydriasis [Unknown]
  - Drug interaction [Recovered/Resolved]
  - Medication error [Unknown]
  - Impaired work ability [Unknown]
  - Visual impairment [Unknown]
  - Feeling abnormal [Recovered/Resolved]
  - Pollakiuria [Unknown]
  - Diabetes mellitus [Not Recovered/Not Resolved]
  - Chills [Unknown]

NARRATIVE: CASE EVENT DATE: 20150126
